APPROVED DRUG PRODUCT: TICAGRELOR
Active Ingredient: TICAGRELOR
Strength: 60MG
Dosage Form/Route: TABLET;ORAL
Application: A210219 | Product #001 | TE Code: AB
Applicant: ALKEM LABORATORIES LTD
Approved: Oct 28, 2025 | RLD: No | RS: No | Type: RX